FAERS Safety Report 14363698 (Version 2)
Quarter: 2018Q1

REPORT INFORMATION
  Report Type: Report from Study
  Country: US (occurrence: US)
  Receive Date: 20180108
  Receipt Date: 20180214
  Transmission Date: 20180509
  Serious: Yes (Other)
  Sender: FDA-Public Use
  Company Number: US-EMD SERONO-E2B_90008041

PATIENT
  Age: 33 Year
  Sex: Female

DRUGS (1)
  1. REBIF [Suspect]
     Active Substance: INTERFERON BETA-1A
     Indication: MULTIPLE SCLEROSIS
     Route: 058
     Dates: start: 20150629

REACTIONS (4)
  - Panic attack [Recovering/Resolving]
  - Neuralgia [Recovering/Resolving]
  - Hypokinesia [Not Recovered/Not Resolved]
  - Cardiac flutter [Not Recovered/Not Resolved]

NARRATIVE: CASE EVENT DATE: 20180101
